FAERS Safety Report 8844404 (Version 4)
Quarter: 2013Q1

REPORT INFORMATION
  Report Type: Spontaneous
  Country: US (occurrence: US)
  Receive Date: 20121017
  Receipt Date: 20130114
  Transmission Date: 20140127
  Serious: Yes (Other)
  Sender: FDA-Public Use
  Company Number: US-PFIZER INC-2012257294

PATIENT
  Sex: Female

DRUGS (3)
  1. NEURONTIN [Suspect]
     Dosage: UNK
  2. NEURONTIN [Suspect]
     Dosage: UNK
  3. GABAPENTIN [Suspect]
     Indication: NERVE INJURY
     Dosage: 300 MG UNK
     Dates: start: 2011

REACTIONS (6)
  - Road traffic accident [Recovering/Resolving]
  - Urticaria [Unknown]
  - Throat tightness [Unknown]
  - Pain [Unknown]
  - Malaise [Unknown]
  - Drug ineffective [Unknown]
